FAERS Safety Report 4873911-0 (Version None)
Quarter: 2006Q1

REPORT INFORMATION
  Report Type: 
  Country: None (occurrence: None)
  Receive Date: 20060104
  Receipt Date: 20051220
  Transmission Date: 20060701
  Serious: Yes (Death)
  Sender: FDA-Public Use
  Company Number: 2005172641

PATIENT
  Sex: Female

DRUGS (5)
  1. DETROL [Suspect]
     Indication: ILL-DEFINED DISORDER
  2. ELAVIL [Suspect]
     Indication: DEPRESSION
  3. TOFRANIL [Suspect]
     Indication: DEPRESSION
  4. MELLARIL [Suspect]
     Indication: DEPRESSION
  5. CALCIUM (CALCIUM) [Concomitant]

REACTIONS (4)
  - ADVERSE EVENT [None]
  - CONSTIPATION [None]
  - FAECALOMA [None]
  - FAILURE TO THRIVE [None]
